FAERS Safety Report 8497205-X (Version None)
Quarter: 2012Q3

REPORT INFORMATION
  Report Type: 
  Country: None (occurrence: None)
  Receive Date: 20120709
  Receipt Date: 20120606
  Transmission Date: 20120928
  Serious: No
  Sender: FDA-Public Use
  Company Number: US-AMGEN-USASP2012035717

PATIENT
  Age: 50 Year
  Sex: Female

DRUGS (4)
  1. CALCIUM [Concomitant]
     Dosage: UNK
  2. ENBREL [Suspect]
     Indication: PRODUCT USED FOR UNKNOWN INDICATION
     Dosage: 50 MG, QWK
  3. BIOTIN [Concomitant]
     Dosage: UNK
  4. MULTI VITAMIN AND MINERAL + SELENIUM [Concomitant]
     Dosage: UNK

REACTIONS (2)
  - LIVER FUNCTION TEST ABNORMAL [None]
  - ALOPECIA [None]
